FAERS Safety Report 5361559-3 (Version None)
Quarter: 2007Q2

REPORT INFORMATION
  Report Type: 
  Country: None (occurrence: None)
  Receive Date: 20070619
  Receipt Date: 20070612
  Transmission Date: 20071010
  Serious: Yes (Hospitalization)
  Sender: FDA-Public Use
  Company Number: PHNU2007DE02123

PATIENT
  Sex: Male

DRUGS (1)
  1. CO-DIOVAN FORTE [Suspect]
     Dosage: UNK, UNK
     Route: 048
     Dates: end: 20070501

REACTIONS (4)
  - BLOOD BILIRUBIN INCREASED [None]
  - HEPATITIS [None]
  - METASTASES TO LUNG [None]
  - PROSTATECTOMY [None]
